FAERS Safety Report 21125780 (Version 1)
Quarter: 2022Q3

REPORT INFORMATION
  Report Type: Spontaneous
  Country: PT (occurrence: PT)
  Receive Date: 20220725
  Receipt Date: 20220725
  Transmission Date: 20221026
  Serious: Yes (Hospitalization, Other)
  Sender: FDA-Public Use
  Company Number: PT-FreseniusKabi-FK202209720

PATIENT
  Age: 10 Year
  Sex: Female
  Weight: 26 kg

DRUGS (4)
  1. CYTARABINE [Suspect]
     Active Substance: CYTARABINE
     Indication: Acute lymphocytic leukaemia
     Dosage: UNK (TRIPLE IT CHEMOTHERAPY)
     Route: 037
  2. METHOTREXATE [Suspect]
     Active Substance: METHOTREXATE
     Indication: Acute lymphocytic leukaemia
     Dosage: UNK (TRIPLE IT CHEMOTHERAPY)
     Route: 037
  3. HYDROCORTISONE [Suspect]
     Active Substance: HYDROCORTISONE
     Indication: Acute lymphocytic leukaemia
     Dosage: UNK (TRIPLE IT CHEMOTHERAPY)
     Route: 037
  4. PEGASPARGASE [Concomitant]
     Active Substance: PEGASPARGASE
     Indication: Acute lymphocytic leukaemia
     Dosage: UNK (SYSTEMIC CORTICOTHERAPY)
     Route: 030

REACTIONS (2)
  - Myelosuppression [Unknown]
  - Coagulopathy [Recovering/Resolving]
